APPROVED DRUG PRODUCT: ACEPHEN
Active Ingredient: ACETAMINOPHEN
Strength: 120MG
Dosage Form/Route: SUPPOSITORY;RECTAL
Application: A072218 | Product #001
Applicant: COSETTE PHARMACEUTICALS INC
Approved: Mar 27, 1992 | RLD: No | RS: No | Type: DISCN